FAERS Safety Report 9477004 (Version 2)
Quarter: 2013Q3

REPORT INFORMATION
  Report Type: Spontaneous
  Country: US (occurrence: US)
  Receive Date: 20130826
  Receipt Date: 20130903
  Transmission Date: 20140515
  Serious: Yes (Hospitalization)
  Sender: FDA-Public Use
  Company Number: US-BAXTER-2013BAX032822

PATIENT
  Age: 43 Year
  Sex: Female

DRUGS (4)
  1. DIANEAL LOW CALCIUM [Suspect]
     Indication: PERITONEAL DIALYSIS
     Route: 033
     Dates: end: 201308
  2. DIANEAL LOW CALCIUM [Suspect]
     Indication: PERITONEAL DIALYSIS
     Route: 033
     Dates: end: 201308
  3. EPOETIN [Suspect]
     Indication: PRODUCT USED FOR UNKNOWN INDICATION
  4. EPOETIN [Suspect]

REACTIONS (3)
  - Blood count abnormal [Recovering/Resolving]
  - Platelet count decreased [Recovering/Resolving]
  - Cholelithiasis [Recovered/Resolved]
